FAERS Safety Report 22245944 (Version 3)
Quarter: 2025Q3

REPORT INFORMATION
  Report Type: Spontaneous
  Country: ID (occurrence: ID)
  Receive Date: 20230424
  Receipt Date: 20250924
  Transmission Date: 20251020
  Serious: Yes (Hospitalization, Other)
  Sender: SANOFI AVENTIS
  Company Number: ID-MLMSERVICE-20230414-4227535-1

PATIENT
  Age: 49 Year
  Sex: Male

DRUGS (4)
  1. OXALIPLATIN [Suspect]
     Active Substance: OXALIPLATIN
     Indication: Metastases to liver
  2. OXALIPLATIN [Suspect]
     Active Substance: OXALIPLATIN
     Indication: Adenocarcinoma of colon
  3. XELODA [Suspect]
     Active Substance: CAPECITABINE
     Indication: Adenocarcinoma of colon
  4. XELODA [Suspect]
     Active Substance: CAPECITABINE
     Indication: Metastases to liver

REACTIONS (2)
  - Acute kidney injury [Recovered/Resolved]
  - Uraemic encephalopathy [Unknown]
